FAERS Safety Report 16228935 (Version 1)
Quarter: 2019Q2

REPORT INFORMATION
  Report Type: Spontaneous
  Country: US (occurrence: US)
  Receive Date: 20190319
  Receipt Date: 20190319
  Transmission Date: 20190711
  Serious: Yes (Other)
  Sender: FDA-Public Use
  Company Number: None

PATIENT
  Sex: Female

DRUGS (2)
  1. DIVALPROEX ER 250MG [Suspect]
     Active Substance: DIVALPROEX SODIUM
     Dosage: 250 MG QAM PO
     Route: 048
     Dates: start: 2009
  2. DIVALPROEX ER 500MG [Suspect]
     Active Substance: DIVALPROEX SODIUM
     Indication: BIPOLAR DISORDER
     Route: 048
     Dates: start: 2009

REACTIONS (1)
  - Nausea [None]
